FAERS Safety Report 10632305 (Version 3)
Quarter: 2015Q1

REPORT INFORMATION
  Report Type: Report from Study
  Country: ES (occurrence: ES)
  Receive Date: 20141205
  Receipt Date: 20150113
  Transmission Date: 20150720
  Serious: Yes (Hospitalization)
  Sender: FDA-Public Use
  Company Number: ES-EISAI MEDICAL RESEARCH-E7389-04119-CLI-ES

PATIENT
  Age: 73 Year
  Sex: Female

DRUGS (7)
  1. OMEPRAZOLE. [Concomitant]
     Active Substance: OMEPRAZOLE
  2. MAGNESIUM [Concomitant]
     Active Substance: MAGNESIUM
  3. CISPLATIN. [Suspect]
     Active Substance: CISPLATIN
     Indication: BLADDER CANCER
     Dosage: 128.1 MG
     Route: 041
     Dates: start: 20130619, end: 20131016
  4. THIAZIDE [Concomitant]
     Active Substance: UNSPECIFIED INGREDIENT
  5. E7389 (BOLD) [Suspect]
     Active Substance: ERIBULIN MESYLATE
     Indication: BLADDER CANCER
     Dosage: 1.83 MG
     Route: 041
     Dates: start: 20130619, end: 20131016
  6. ENALAPRIL [Concomitant]
     Active Substance: ENALAPRIL
  7. GEMCITABINE [Suspect]
     Active Substance: GEMCITABINE\GEMCITABINE HYDROCHLORIDE
     Indication: BLADDER CANCER
     Dosage: 1830 MG
     Route: 041
     Dates: start: 20130619, end: 20131016

REACTIONS (1)
  - Transient ischaemic attack [Recovered/Resolved]

NARRATIVE: CASE EVENT DATE: 20130805
